FAERS Safety Report 15406281 (Version 1)
Quarter: 2018Q3

REPORT INFORMATION
  Report Type: Spontaneous
  Country: DE (occurrence: DE)
  Receive Date: 20180920
  Receipt Date: 20180920
  Transmission Date: 20181010
  Serious: Yes (Hospitalization, Other)
  Sender: FDA-Public Use
  Company Number: DE-TEVA-2018-DE-956474

PATIENT
  Age: 80 Year
  Sex: Female

DRUGS (14)
  1. RISPERIDON [Suspect]
     Active Substance: RISPERIDONE
     Dosage: .5 MILLIGRAM DAILY;
     Route: 048
     Dates: start: 20180222, end: 20180225
  2. RISPERIDON [Suspect]
     Active Substance: RISPERIDONE
     Dosage: 0 ? 2.5 MG
     Route: 048
     Dates: start: 20161201, end: 20180212
  3. DORZOLAMIDE,TIMOLOL [Concomitant]
     Active Substance: DORZOLAMIDE\TIMOLOL
     Dosage: 2 GTT DAILY; SEIT MONATEN
     Route: 047
     Dates: end: 20180221
  4. LANTUS [Concomitant]
     Active Substance: INSULIN GLARGINE
     Dosage: 20 IU (INTERNATIONAL UNIT) DAILY; SEIT MONATEN
     Route: 058
  5. SIMVASTATIN. [Concomitant]
     Active Substance: SIMVASTATIN
     Dosage: 20 MILLIGRAM DAILY; SEIT MONATEN
     Route: 048
     Dates: end: 20180221
  6. PREDNIFLUID [Concomitant]
     Dosage: 2 GTT DAILY; SEIT MONATEN  ? B.A.W.
     Route: 047
  7. ENALAPRIL [Concomitant]
     Active Substance: ENALAPRIL
     Dosage: 20 MILLIGRAM DAILY; SEIT MONATEN
     Route: 048
     Dates: end: 20180220
  8. RISPERIDON [Suspect]
     Active Substance: RISPERIDONE
     Route: 048
     Dates: start: 20180213, end: 20180221
  9. PIPAMPERON [Suspect]
     Active Substance: PIPAMPERONE HYDROCHLORIDE
     Dosage: 60 MILLIGRAM DAILY; B.A.W.
     Route: 048
     Dates: start: 20180213
  10. ENALAPRIL [Concomitant]
     Active Substance: ENALAPRIL
     Dosage: B.A.W.
     Route: 048
     Dates: start: 20180221
  11. ELIQUIS [Concomitant]
     Active Substance: APIXABAN
     Dosage: 10 MILLIGRAM DAILY; SEIT MONATEN ? B.A.W.
     Route: 048
  12. MIRTAZAPIN [Concomitant]
     Active Substance: MIRTAZAPINE
     Dosage: 30 MILLIGRAM DAILY; B.A.W.
     Route: 048
     Dates: start: 20180213
  13. ACTRAPID [Concomitant]
     Active Substance: INSULIN HUMAN
     Dosage: SEIT MONATEN; B.A.W.?NACH SCHEMA IE
     Route: 058
  14. BRIMOZEPT [Concomitant]
     Dosage: 2 GTT DAILY; SEIT MONATEN ? B.A.W.
     Route: 047

REACTIONS (1)
  - Rabbit syndrome [Recovering/Resolving]

NARRATIVE: CASE EVENT DATE: 20180221
